FAERS Safety Report 19501518 (Version 1)
Quarter: 2021Q3

REPORT INFORMATION
  Report Type: Spontaneous
  Country: US (occurrence: US)
  Receive Date: 20210706
  Receipt Date: 20210706
  Transmission Date: 20211014
  Serious: No
  Sender: FDA-Public Use
  Company Number: None

PATIENT
  Age: 59 Year
  Sex: Male

DRUGS (1)
  1. KEYTRUDA [Suspect]
     Active Substance: PEMBROLIZUMAB
     Indication: LUNG NEOPLASM
     Dosage: ?          OTHER FREQUENCY:OTHER;?
     Route: 041
     Dates: start: 201604

REACTIONS (4)
  - Headache [None]
  - Dizziness [None]
  - Hypertension [None]
  - Condition aggravated [None]

NARRATIVE: CASE EVENT DATE: 20210607
